FAERS Safety Report 4952974-8 (Version None)
Quarter: 2006Q1

REPORT INFORMATION
  Report Type: 
  Country: None (occurrence: None)
  Receive Date: 20060321
  Receipt Date: 20060309
  Transmission Date: 20060701
  Serious: Yes (Other)
  Sender: FDA-Public Use
  Company Number: GB-2005-026304

PATIENT
  Sex: 0

DRUGS (1)
  1. CAMPATH  10                / MABCAMPATH (ALEMTUZUMAB) 10 [Suspect]

REACTIONS (2)
  - AUTOIMMUNE DISORDER [None]
  - THYROID DISORDER [None]
